FAERS Safety Report 9252512 (Version 2)
Quarter: 2014Q1

REPORT INFORMATION
  Report Type: Spontaneous
  Country: US (occurrence: None)
  Receive Date: 20130305
  Receipt Date: 20140306
  Transmission Date: 20141002
  Serious: Yes (Other)
  Sender: FDA-Public Use
  Company Number: 163-21880-12082682

PATIENT
  Age: 39 Year
  Sex: Male

DRUGS (9)
  1. REVLIMID [Suspect]
     Indication: PLASMA CELL MYELOMA
     Dosage: 15 MG, 21 IN 28 D, PO
     Route: 048
     Dates: start: 20120607
  2. CIALIS [Concomitant]
  3. DEXAMETHASONE (DEXAMETHASONE) [Concomitant]
  4. PREDNISONE (PREDDISONE) [Concomitant]
  5. NEXIUM (ESOMEPRAZOLE) [Concomitant]
  6. ZOLPIDEM (ZOLPIDEM) [Concomitant]
  7. TACROLIMUS (TACROLIMUS) [Concomitant]
  8. OXYCODONE (OXYCODONE) [Concomitant]
  9. ARIXTTRA (FODAPARINUX SODIUM) [Concomitant]

REACTIONS (5)
  - Deep vein thrombosis [None]
  - Hypocalcaemia [None]
  - Hypomagnesaemia [None]
  - Muscle spasms [None]
  - Muscle spasms [None]
